FAERS Safety Report 7221305-5 (Version None)
Quarter: 2011Q1

REPORT INFORMATION
  Report Type: 
  Country: None (occurrence: None)
  Receive Date: 20110112
  Receipt Date: 20101013
  Transmission Date: 20110831
  Serious: No
  Sender: FDA-Public Use
  Company Number: US-BAYER-201022556BCC

PATIENT
  Sex: Male
  Weight: 111.36 kg

DRUGS (2)
  1. UNCODEABLE ^UNCLASSIFIABLE^ [Concomitant]
     Dosage: UNK
     Route: 061
     Dates: start: 20101013
  2. ALEVE [Suspect]
     Indication: PRODUCT USED FOR UNKNOWN INDICATION
     Dosage: 1 DF, ONCE
     Route: 048
     Dates: start: 20101013

REACTIONS (4)
  - PRURITUS [None]
  - HYPERSENSITIVITY [None]
  - DYSPNOEA [None]
  - CHEST DISCOMFORT [None]
